FAERS Safety Report 23872469 (Version 1)
Quarter: 2024Q2

REPORT INFORMATION
  Report Type: Spontaneous
  Country: US (occurrence: US)
  Receive Date: 20240520
  Receipt Date: 20240520
  Transmission Date: 20240715
  Serious: No
  Sender: FDA-Public Use
  Company Number: US-AMGEN-USASP2024096106

PATIENT
  Age: 74 Year
  Sex: Female

DRUGS (3)
  1. REPATHA [Suspect]
     Active Substance: EVOLOCUMAB
     Indication: Lipids increased
     Dosage: 420 MILLIGRAM
     Route: 058
  2. REPATHA [Suspect]
     Active Substance: EVOLOCUMAB
     Dosage: 420 MILLIGRAM
     Route: 058
  3. ACTOS [Concomitant]
     Active Substance: PIOGLITAZONE HYDROCHLORIDE
     Dosage: UNK
     Route: 065

REACTIONS (4)
  - Injection site discomfort [Recovered/Resolved]
  - Injection site pain [Recovered/Resolved]
  - Device difficult to use [Unknown]
  - Therapy interrupted [Unknown]

NARRATIVE: CASE EVENT DATE: 20240501
